FAERS Safety Report 18815502 (Version 1)
Quarter: 2021Q1

REPORT INFORMATION
  Report Type: Spontaneous
  Country: US (occurrence: US)
  Receive Date: 20210130
  Receipt Date: 20210130
  Transmission Date: 20210419
  Serious: Yes (Hospitalization)
  Sender: FDA-Public Use
  Company Number: None

PATIENT
  Age: 54 Year
  Sex: Female
  Weight: 73.3 kg

DRUGS (20)
  1. TBO?FILGRASTIM [Concomitant]
     Active Substance: TBO-FILGRASTIM
  2. PRENATAL VITAMINS [Concomitant]
     Active Substance: VITAMINS
  3. ELROILMUS [Concomitant]
  4. AZITHROMYCIN ANHYDROUS. [Concomitant]
     Active Substance: AZITHROMYCIN ANHYDROUS
  5. METOPRPREDNISONE [Concomitant]
  6. ALBUTEROL. [Concomitant]
     Active Substance: ALBUTEROL
  7. TACROILMUS [Concomitant]
  8. MEOPENEM [Concomitant]
     Active Substance: MEROPENEM
  9. MAGNESIUME CHLORIDE [Concomitant]
  10. BAMLANIVIMAB. [Suspect]
     Active Substance: BAMLANIVIMAB
     Indication: COVID-19
     Route: 042
     Dates: start: 20210108, end: 20210108
  11. VITAMIN C [Concomitant]
     Active Substance: ASCORBIC ACID
  12. BACTRIM DS [Concomitant]
     Active Substance: SULFAMETHOXAZOLE\TRIMETHOPRIM
  13. ZINC. [Concomitant]
     Active Substance: ZINC
  14. DEXAMETHASONE. [Concomitant]
     Active Substance: DEXAMETHASONE
  15. REMDESIVIR. [Concomitant]
     Active Substance: REMDESIVIR
  16. CACLUM + VIT D [Concomitant]
  17. LETERMOVIR [Concomitant]
     Active Substance: LETERMOVIR
  18. LASIX [Concomitant]
     Active Substance: FUROSEMIDE
  19. IRON SUCROSE [Concomitant]
     Active Substance: IRON SUCROSE
  20. INSULIN [Concomitant]
     Active Substance: INSULIN NOS

REACTIONS (1)
  - Respiratory distress [None]

NARRATIVE: CASE EVENT DATE: 20210108
